FAERS Safety Report 5893932-9 (Version None)
Quarter: 2008Q3

REPORT INFORMATION
  Report Type: 
  Country: None (occurrence: None)
  Receive Date: 20080923
  Receipt Date: 20080912
  Transmission Date: 20090109
  Serious: Yes (Hospitalization, Other)
  Sender: FDA-Public Use
  Company Number: US-ELI_LILLY_AND_COMPANY-US200808000101

PATIENT
  Sex: Female

DRUGS (2)
  1. HUMULIN N [Suspect]
     Dates: start: 19830101
  2. HUMULIN R [Suspect]
     Dates: start: 19830101

REACTIONS (3)
  - BLOOD GLUCOSE INCREASED [None]
  - HOSPITALISATION [None]
  - MYOCARDIAL INFARCTION [None]
